FAERS Safety Report 8436349-5 (Version None)
Quarter: 2012Q2

REPORT INFORMATION
  Report Type: 
  Country: None (occurrence: None)
  Receive Date: 20120614
  Receipt Date: 20120607
  Transmission Date: 20120825
  Serious: Yes (Death)
  Sender: FDA-Public Use
  Company Number: US-ROCHE-GNE313620

PATIENT
  Sex: Female
  Weight: 88.6 kg

DRUGS (1)
  1. MABTHERA [Suspect]
     Indication: RHEUMATOID ARTHRITIS
     Dosage: 1000 MG, UNKLAST DOSE PRIOT TO THE SAE ON 02/SEP/2009
     Route: 042
     Dates: start: 20071011

REACTIONS (1)
  - CARDIO-RESPIRATORY ARREST [None]
